FAERS Safety Report 13746960 (Version 1)
Quarter: 2017Q3

REPORT INFORMATION
  Report Type: Spontaneous
  Country: US (occurrence: US)
  Receive Date: 20170712
  Receipt Date: 20170712
  Transmission Date: 20171127
  Serious: Yes (Other)
  Sender: FDA-Public Use
  Company Number: US-AVADEL LEGACY PHARMACEUTICALS, LLC-2017AVA00059

PATIENT
  Sex: Female

DRUGS (1)
  1. PHENYLEPHRINE [Suspect]
     Active Substance: PHENYLEPHRINE\PHENYLEPHRINE HYDROCHLORIDE
     Route: 065

REACTIONS (2)
  - Bradycardia [Recovered/Resolved]
  - Torsade de pointes [Recovered/Resolved]
